FAERS Safety Report 10592919 (Version 5)
Quarter: 2015Q4

REPORT INFORMATION
  Report Type: Spontaneous
  Country: GB (occurrence: GB)
  Receive Date: 20141119
  Receipt Date: 20151123
  Transmission Date: 20160304
  Serious: Yes (Other)
  Sender: FDA-Public Use
  Company Number: GB-WATSON-2014-24441

PATIENT
  Age: 34 Year

DRUGS (6)
  1. CYCLOSPORINE (UNKNOWN) [Suspect]
     Active Substance: CYCLOSPORINE
     Indication: ANEURYSM
  2. AZATHIOPRINE (UNKNOWN) [Suspect]
     Active Substance: AZATHIOPRINE
     Indication: ANEURYSM
     Dosage: UNK
     Route: 065
  3. MYCOPHENOLATE MOFETIL (UNKNOWN) [Suspect]
     Active Substance: MYCOPHENOLATE MOFETIL
     Indication: SCLERITIS
     Dosage: UNK
     Route: 065
  4. AZATHIOPRINE (UNKNOWN) [Suspect]
     Active Substance: AZATHIOPRINE
     Indication: SCLERITIS
  5. MYCOPHENOLATE MOFETIL (UNKNOWN) [Suspect]
     Active Substance: MYCOPHENOLATE MOFETIL
     Indication: ANEURYSM
  6. CYCLOSPORINE (UNKNOWN) [Suspect]
     Active Substance: CYCLOSPORINE
     Indication: SCLERITIS
     Dosage: UNK
     Route: 065

REACTIONS (9)
  - Aneurysm [Recovered/Resolved with Sequelae]
  - Disease progression [Unknown]
  - Vascular stent thrombosis [Recovered/Resolved with Sequelae]
  - Post procedural complication [Recovered/Resolved with Sequelae]
  - Scleritis [Recovering/Resolving]
  - Peripheral artery aneurysm [Unknown]
  - Peripheral ischaemia [Not Recovered/Not Resolved]
  - Femoral artery aneurysm [Recovered/Resolved with Sequelae]
  - Off label use [Unknown]
